FAERS Safety Report 9640045 (Version 1)
Quarter: 2013Q4

REPORT INFORMATION
  Report Type: Report from Study
  Country: AR (occurrence: AR)
  Receive Date: 20131023
  Receipt Date: 20131023
  Transmission Date: 20140711
  Serious: Yes (Other)
  Sender: FDA-Public Use
  Company Number: PHHY2013AR119426

PATIENT
  Sex: Female

DRUGS (1)
  1. EXFORGE [Suspect]
     Indication: HYPERTENSION
     Dosage: 2 DF (160/10MG) DAILY
     Route: 048
     Dates: end: 201302

REACTIONS (2)
  - Fibromyalgia [Recovering/Resolving]
  - Local swelling [Recovering/Resolving]
